FAERS Safety Report 25988889 (Version 1)
Quarter: 2025Q4

REPORT INFORMATION
  Report Type: Spontaneous
  Country: US (occurrence: US)
  Receive Date: 20251103
  Receipt Date: 20251103
  Transmission Date: 20260119
  Serious: No
  Sender: RIGEL PHARMACEUTICALS
  Company Number: US-RIGEL Pharmaceuticals INC-20241100108

PATIENT
  Sex: Male
  Weight: 93 kg

DRUGS (1)
  1. GAVRETO [Suspect]
     Active Substance: PRALSETINIB
     Indication: Lung neoplasm malignant
     Dosage: 100MG, QD
     Route: 048
     Dates: start: 20241022

REACTIONS (5)
  - Product prescribing issue [Unknown]
  - Weight decreased [Recovering/Resolving]
  - Ill-defined disorder [Unknown]
  - Dehydration [Unknown]
  - Nausea [Recovered/Resolved]

NARRATIVE: CASE EVENT DATE: 20240101
